FAERS Safety Report 16674078 (Version 3)
Quarter: 2020Q4

REPORT INFORMATION
  Report Type: Spontaneous
  Country: None (occurrence: US)
  Receive Date: 20190806
  Receipt Date: 20201001
  Transmission Date: 20210113
  Serious: Yes (Other)
  Sender: FDA-Public Use
  Company Number: US-LUNDBECK-DKLU3002059

PATIENT
  Age: 20 Month
  Sex: Female

DRUGS (3)
  1. VIGABATRIN (FOR ORAL SOLUTION) [Suspect]
     Active Substance: VIGABATRIN
     Indication: INFANTILE SPASMS
     Route: 048
  2. PREDNISONE. [Suspect]
     Active Substance: PREDNISONE
     Indication: INFANTILE SPASMS
     Route: 065
  3. ACTH [Suspect]
     Active Substance: CORTICOTROPIN
     Indication: INFANTILE SPASMS
     Dosage: 150 U/M2 BSA PER DAY, 64 UNITS PER DAY
     Route: 065

REACTIONS (10)
  - Paraplegia [Unknown]
  - Lipomatosis [Unknown]
  - Toxicity to various agents [Unknown]
  - Aspiration [Unknown]
  - Spinal cord compression [Unknown]
  - Dysphagia [Unknown]
  - Magnetic resonance imaging brain abnormal [Recovered/Resolved]
  - Lethargy [Unknown]
  - Somnolence [Recovering/Resolving]
  - Poor sucking reflex [Unknown]
